FAERS Safety Report 19500706 (Version 2)
Quarter: 2021Q3

REPORT INFORMATION
  Report Type: Spontaneous
  Country: US (occurrence: US)
  Receive Date: 20210706
  Receipt Date: 20210825
  Transmission Date: 20211014
  Serious: No
  Sender: FDA-Public Use
  Company Number: US-SA-2021SA220386

PATIENT
  Sex: Female

DRUGS (4)
  1. AUBAGIO [Suspect]
     Active Substance: TERIFLUNOMIDE
     Indication: MULTIPLE SCLEROSIS
     Dosage: 14 MG, QD
     Route: 048
  2. ZINC. [Concomitant]
     Active Substance: ZINC
  3. COLLAGEN [Concomitant]
     Active Substance: COLLAGEN
  4. ESTROVEN [Concomitant]
     Active Substance: DIETARY SUPPLEMENT

REACTIONS (4)
  - Product dose omission in error [Unknown]
  - Fear of disease [Unknown]
  - Alopecia [Unknown]
  - Product dose omission issue [Unknown]
